FAERS Safety Report 18659203 (Version 2)
Quarter: 2022Q1

REPORT INFORMATION
  Report Type: Report from Study
  Country: US (occurrence: US)
  Receive Date: 20201223
  Receipt Date: 20220113
  Transmission Date: 20220423
  Serious: Yes (Life-Threatening)
  Sender: FDA-Public Use
  Company Number: US-REGENERON PHARMACEUTICALS, INC.-2020-95992

PATIENT
  Age: 81 Year
  Sex: Male

DRUGS (1)
  1. CASIRIVIMAB\IMDEVIMAB [Suspect]
     Active Substance: CASIRIVIMAB\IMDEVIMAB
     Indication: COVID-19
     Dosage: CASIRIVIMAB AND IMDEVIMAB COMBINATION THERAPY 2.4 G, IV, SINGLE DOSE
     Route: 042
     Dates: start: 20201217, end: 20201217

REACTIONS (5)
  - Tremor [Unknown]
  - Chills [Unknown]
  - Nausea [Recovering/Resolving]
  - Vomiting [Unknown]
  - Tachycardia [Unknown]

NARRATIVE: CASE EVENT DATE: 20201217
